FAERS Safety Report 7974407-X (Version None)
Quarter: 2011Q4

REPORT INFORMATION
  Report Type: 
  Country: None (occurrence: None)
  Receive Date: 20111213
  Receipt Date: 20111201
  Transmission Date: 20120403
  Serious: No
  Sender: FDA-Public Use
  Company Number: CH-NOVOPROD-341184

PATIENT

DRUGS (1)
  1. VICTOZA [Suspect]
     Indication: PRODUCT USED FOR UNKNOWN INDICATION
     Dosage: UNK
     Dates: start: 20090101, end: 20110101

REACTIONS (1)
  - PANCREATITIS [None]
